FAERS Safety Report 19704488 (Version 2)
Quarter: 2024Q1

REPORT INFORMATION
  Report Type: Spontaneous
  Country: FR (occurrence: FR)
  Receive Date: 20210816
  Receipt Date: 20240118
  Transmission Date: 20240410
  Serious: Yes (Life-Threatening, Hospitalization, Other)
  Sender: FDA-Public Use
  Company Number: FR-ROCHE-2031433

PATIENT
  Age: 75 Year
  Sex: Male
  Weight: 88 kg

DRUGS (33)
  1. BISOPROLOL [Suspect]
     Active Substance: BISOPROLOL\BISOPROLOL FUMARATE
     Indication: Hypertension
     Route: 048
     Dates: start: 20171006
  2. METFORMIN [Suspect]
     Active Substance: METFORMIN HYDROCHLORIDE
     Indication: Diabetes mellitus
     Route: 048
     Dates: start: 20170824, end: 20171025
  3. DAFALGAN [Suspect]
     Active Substance: ACETAMINOPHEN
     Indication: Pain
     Route: 048
     Dates: start: 20171009
  4. DAFALGAN [Suspect]
     Active Substance: ACETAMINOPHEN
     Route: 048
     Dates: start: 20171009
  5. DAFALGAN [Suspect]
     Active Substance: ACETAMINOPHEN
     Route: 048
     Dates: start: 20171009
  6. ALPRAZOLAM [Suspect]
     Active Substance: ALPRAZOLAM
     Indication: Depressive symptom
     Route: 048
     Dates: start: 20170728
  7. ALPRAZOLAM [Suspect]
     Active Substance: ALPRAZOLAM
     Route: 048
     Dates: start: 20170928
  8. ALPRAZOLAM [Suspect]
     Active Substance: ALPRAZOLAM
     Route: 048
     Dates: start: 20170928
  9. MIRTAZAPINE [Suspect]
     Active Substance: MIRTAZAPINE
     Indication: Depressive symptom
     Route: 048
     Dates: start: 20170910
  10. NEFOPAM [Suspect]
     Active Substance: NEFOPAM
     Indication: Pain
     Route: 048
  11. NEFOPAM [Suspect]
     Active Substance: NEFOPAM
     Route: 048
  12. NEFOPAM [Suspect]
     Active Substance: NEFOPAM
     Route: 048
  13. NEFOPAM [Suspect]
     Active Substance: NEFOPAM
     Route: 048
  14. POTASSIUM CHLORIDE [Suspect]
     Active Substance: POTASSIUM CHLORIDE
     Indication: Hypokalaemia
     Route: 048
     Dates: start: 20170824
  15. POTASSIUM CHLORIDE [Suspect]
     Active Substance: POTASSIUM CHLORIDE
     Dosage: FREQUENCY TEXT: (2-1-0)
     Route: 048
     Dates: start: 20170824, end: 20171003
  16. AMLODIPINE [Suspect]
     Active Substance: AMLODIPINE BESYLATE
     Indication: Hypertension
     Route: 048
     Dates: start: 20170825, end: 20170927
  17. COLCHICINE [Suspect]
     Active Substance: COLCHICINE
     Indication: Gout
     Route: 048
     Dates: start: 20170914, end: 20170921
  18. XARELTO [Suspect]
     Active Substance: RIVAROXABAN
     Indication: Atrial fibrillation
     Route: 048
     Dates: start: 20170824, end: 20171025
  19. PANTOPRAZOLE [Suspect]
     Active Substance: PANTOPRAZOLE
     Indication: Gastrooesophageal reflux disease
     Route: 048
     Dates: start: 2015
  20. PANTOPRAZOLE [Suspect]
     Active Substance: PANTOPRAZOLE
     Route: 048
     Dates: start: 20150101, end: 20171025
  21. PANTOPRAZOLE [Suspect]
     Active Substance: PANTOPRAZOLE
     Route: 048
     Dates: start: 20171025
  22. ESCITALOPRAM OXALATE [Suspect]
     Active Substance: ESCITALOPRAM OXALATE
     Indication: Depressive symptom
     Route: 048
     Dates: start: 20170101, end: 20170910
  23. LEVOFLOXACIN [Suspect]
     Active Substance: LEVOFLOXACIN
     Indication: Lung disorder
     Route: 048
     Dates: start: 20170905, end: 20170919
  24. LEVOFLOXACIN [Suspect]
     Active Substance: LEVOFLOXACIN
     Route: 048
     Dates: start: 20170905, end: 20170919
  25. VALIUM [Suspect]
     Active Substance: DIAZEPAM
     Indication: Depressive symptom
     Route: 048
     Dates: start: 20170101, end: 20170927
  26. VALIUM [Suspect]
     Active Substance: DIAZEPAM
     Route: 048
     Dates: start: 20170101, end: 20170927
  27. FUROSEMIDE [Suspect]
     Active Substance: FUROSEMIDE
     Indication: Hypertension
     Dosage: 2 (UNIT UNSPECIFIED)??FREQUENCY TEXT: (2-1-0), BID
     Route: 048
     Dates: start: 20170825, end: 20171003
  28. FUROSEMIDE [Suspect]
     Active Substance: FUROSEMIDE
     Route: 048
     Dates: start: 20210625
  29. FUROSEMIDE [Suspect]
     Active Substance: FUROSEMIDE
     Dosage: UNKNOWN DOSAGE
     Route: 048
     Dates: start: 20170825, end: 20171003
  30. TERBUTALINE [Suspect]
     Active Substance: TERBUTALINE
     Indication: Lung disorder
     Route: 055
     Dates: start: 20170914, end: 20170921
  31. IRBESARTAN [Suspect]
     Active Substance: IRBESARTAN
     Indication: Hypertension
     Route: 048
     Dates: start: 2015
  32. IRBESARTAN [Suspect]
     Active Substance: IRBESARTAN
     Route: 048
     Dates: start: 20150101, end: 20171006
  33. METFORMIN [Suspect]
     Active Substance: METFORMIN HYDROCHLORIDE
     Indication: Diabetes mellitus
     Route: 048
     Dates: start: 20170824, end: 20171025

REACTIONS (1)
  - Agranulocytosis [Recovered/Resolved]

NARRATIVE: CASE EVENT DATE: 20171024
